FAERS Safety Report 21843163 (Version 2)
Quarter: 2023Q1

REPORT INFORMATION
  Report Type: Other
  Country: US (occurrence: US)
  Receive Date: 20230110
  Receipt Date: 20230315
  Transmission Date: 20230418
  Serious: Yes (Death)
  Sender: FDA-Public Use
  Company Number: US-TOLMAR, INC.-22US038162

PATIENT
  Age: 57 Year
  Sex: Male
  Weight: 167.8 kg

DRUGS (10)
  1. ELIGARD [Suspect]
     Active Substance: LEUPROLIDE ACETATE
     Indication: Prostate cancer
     Dosage: UNK, Q 3 MONTH
     Route: 058
     Dates: start: 20180626, end: 20181211
  2. ELIGARD [Suspect]
     Active Substance: LEUPROLIDE ACETATE
     Dosage: UNK, Q 3 MONTH
     Route: 058
     Dates: start: 20181211, end: 20181211
  3. ENZALUTAMIDE [Suspect]
     Active Substance: ENZALUTAMIDE
     Indication: Prostate cancer
     Dosage: UNK, QD
     Route: 048
     Dates: start: 20180626, end: 20190108
  4. AMLODIPINE [Concomitant]
     Active Substance: AMLODIPINE BESYLATE
     Indication: Hypertension
     Dosage: UNK
     Route: 048
     Dates: start: 201709
  5. ROSUVASTATIN [Concomitant]
     Active Substance: ROSUVASTATIN
     Indication: Hypercholesterolaemia
     Dosage: UNK
     Route: 048
     Dates: start: 20170912
  6. BENZONATATE [Concomitant]
     Active Substance: BENZONATATE
     Indication: Nasopharyngitis
     Dosage: UNK
     Route: 048
     Dates: start: 20180314
  7. BENZONATATE [Concomitant]
     Active Substance: BENZONATATE
     Indication: Cough
  8. CIALIS [Concomitant]
     Active Substance: TADALAFIL
     Indication: Erectile dysfunction
     Dosage: UNK
     Route: 048
     Dates: start: 20171006
  9. MELOXICAM [Concomitant]
     Active Substance: MELOXICAM
     Indication: Knee operation
     Dosage: UNK
     Route: 048
     Dates: start: 20180427
  10. ACETAMINOPHEN\HYDROCODONE [Concomitant]
     Active Substance: ACETAMINOPHEN\HYDROCODONE
     Indication: Knee operation
     Dosage: UNK
     Route: 048
     Dates: start: 20180607

REACTIONS (1)
  - Cerebrovascular accident [Fatal]

NARRATIVE: CASE EVENT DATE: 20221130
